FAERS Safety Report 7022621-2 (Version None)
Quarter: 2010Q3

REPORT INFORMATION
  Report Type: 
  Country: None (occurrence: None)
  Receive Date: 20100930
  Receipt Date: 20091014
  Transmission Date: 20110219
  Serious: Yes (Other)
  Sender: FDA-Public Use
  Company Number: US-AMGEN-QUU441324

PATIENT
  Sex: Female

DRUGS (7)
  1. NPLATE [Suspect]
     Indication: IDIOPATHIC THROMBOCYTOPENIC PURPURA
     Dates: start: 20091002
  2. CORTICOSTEROIDS [Concomitant]
     Dates: start: 20090804
  3. IMMU-G [Concomitant]
     Dates: start: 20090804
  4. DANAZOL [Concomitant]
     Dates: start: 20090930
  5. AZATHIOPRINE [Concomitant]
     Dates: start: 20090910
  6. RITUXIMAB [Concomitant]
     Dates: start: 20090802, end: 20090903
  7. CYCLOPHOSPHAMIDE [Concomitant]
     Dates: start: 20091012

REACTIONS (6)
  - ANAEMIA [None]
  - LEUKOCYTOSIS [None]
  - NEUTROPHILIA [None]
  - PLASMACYTOSIS [None]
  - PNEUMONIA [None]
  - RESPIRATORY FAILURE [None]
